FAERS Safety Report 5204522-5 (Version None)
Quarter: 2007Q1

REPORT INFORMATION
  Report Type: 
  Country: None (occurrence: None)
  Receive Date: 20070110
  Receipt Date: 20060612
  Transmission Date: 20070707
  Serious: No
  Sender: FDA-Public Use
  Company Number: US-BRISTOL-MYERS SQUIBB COMPANY-13357355

PATIENT
  Age: 26 Year
  Sex: Female

DRUGS (4)
  1. ABILIFY [Suspect]
     Indication: SCHIZOAFFECTIVE DISORDER
     Route: 048
  2. ABILIFY [Suspect]
     Indication: BIPOLAR DISORDER
     Route: 048
  3. LEXAPRO [Concomitant]
     Route: 048
  4. LAMICTAL [Concomitant]
     Route: 048
     Dates: start: 20060411, end: 20060419

REACTIONS (1)
  - PREGNANCY [None]
